FAERS Safety Report 5419169-5 (Version None)
Quarter: 2007Q3

REPORT INFORMATION
  Report Type: 
  Country: None (occurrence: None)
  Receive Date: 20070815
  Receipt Date: 20070815
  Transmission Date: 20080115
  Serious: Yes (Hospitalization)
  Sender: FDA-Public Use
  Company Number: None

PATIENT
  Age: 76 Year
  Sex: Female
  Weight: 100 kg

DRUGS (20)
  1. NAFCILLIN SODIUM [Suspect]
     Indication: EXTRADURAL ABSCESS
     Dosage: 2GM EVERY 6 HRS IV
     Route: 042
     Dates: start: 20070716, end: 20070723
  2. NAFCILLIN SODIUM [Suspect]
     Indication: SEPSIS
     Dosage: 2GM EVERY 6 HRS IV
     Route: 042
     Dates: start: 20070716, end: 20070723
  3. AMBIEN [Concomitant]
  4. BENADRYL [Concomitant]
  5. MG CITRATE [Concomitant]
  6. AVANDIA [Concomitant]
  7. FUROSEMIDE [Concomitant]
  8. LEVOTHYROXINE SODIUM [Concomitant]
  9. DIOVAN [Concomitant]
  10. HYDROCHLOROTHIAZIDE [Concomitant]
  11. CRESTOR [Concomitant]
  12. METFORMIN HCL [Concomitant]
  13. POTASSIUM CHLORIDE [Concomitant]
  14. INSULIN ASPART [Concomitant]
  15. MORPHINE SULFATE [Concomitant]
  16. CYCLOBENZAPRINE HCL [Concomitant]
  17. ZANTAC 150 [Concomitant]
  18. HEPARIN SODIUM [Concomitant]
  19. RIFAMPICIN [Concomitant]
  20. FUROSEMIDE [Concomitant]

REACTIONS (1)
  - NEPHRITIS INTERSTITIAL [None]
